FAERS Safety Report 22598931 (Version 1)
Quarter: 2023Q2

REPORT INFORMATION
  Report Type: Other
  Country: FR (occurrence: None)
  Receive Date: 20230614
  Receipt Date: 20230614
  Transmission Date: 20230721
  Serious: Yes (Other)
  Sender: FDA-Public Use
  Company Number: FR-ROCHE-3365766

PATIENT

DRUGS (1)
  1. ATEZOLIZUMAB [Suspect]
     Active Substance: ATEZOLIZUMAB
     Indication: Lung neoplasm malignant
     Route: 065

REACTIONS (12)
  - Cardiotoxicity [Unknown]
  - Gastrointestinal toxicity [Unknown]
  - Endocrine toxicity [Unknown]
  - Haematotoxicity [Unknown]
  - Hepatotoxicity [Unknown]
  - Immune system disorder [Unknown]
  - Procedural complication [Unknown]
  - Musculoskeletal toxicity [Unknown]
  - Neurotoxicity [Unknown]
  - Ocular toxicity [Unknown]
  - Pulmonary toxicity [Unknown]
  - Nephropathy toxic [Unknown]
